FAERS Safety Report 5262171-7 (Version None)
Quarter: 2007Q1

REPORT INFORMATION
  Report Type: 
  Country: None (occurrence: None)
  Receive Date: 20070311
  Receipt Date: 20070228
  Transmission Date: 20070707
  Serious: Yes (Other)
  Sender: FDA-Public Use
  Company Number: 2006UW01616

PATIENT
  Age: 19936 Day
  Sex: Male
  Weight: 92.7 kg

DRUGS (3)
  1. SEROQUEL [Suspect]
     Indication: MAJOR DEPRESSION
     Route: 048
     Dates: start: 20020423, end: 20021112
  2. SEROQUEL [Suspect]
     Route: 048
     Dates: start: 20021121, end: 20060802
  3. ZYPREXA [Suspect]

REACTIONS (2)
  - GLUCOSE TOLERANCE IMPAIRED [None]
  - MYOCARDIAL INFARCTION [None]
